FAERS Safety Report 8725131 (Version 3)
Quarter: 2012Q4

REPORT INFORMATION
  Report Type: 
  Country: CN (occurrence: CN)
  Receive Date: 20120815
  Receipt Date: 20120904
  Transmission Date: 20130627
  Serious: Yes (Death, Hospitalization)
  Sender: FDA-Public Use
  Company Number: CN-GLAXOSMITHKLINE-B0821716A

PATIENT
  Age: 62 Year
  Sex: Male
  Weight: 60 kg

DRUGS (3)
  1. LAMICTAL [Suspect]
     Indication: EPILEPSY
     Dosage: 25MG per day
     Route: 048
     Dates: start: 20120621, end: 20120722
  2. GANCICLOVIR [Concomitant]
     Indication: ENCEPHALITIS
     Dosage: 500MG per day
     Route: 042
     Dates: start: 20120626, end: 20120722
  3. DEPAKIN [Concomitant]
     Indication: EPILEPSY
     Dosage: 500MG per day
     Route: 048
     Dates: start: 20120520, end: 20120722

REACTIONS (40)
  - Thrombocytopenia [Unknown]
  - Convulsion [Unknown]
  - Multi-organ failure [Fatal]
  - Blister [Unknown]
  - Nikolsky^s sign [Unknown]
  - Epidermolysis bullosa [Fatal]
  - Respiratory failure [Unknown]
  - Circulatory collapse [Unknown]
  - Convulsions local [Unknown]
  - Hypoglycaemia [Unknown]
  - Hypovolaemic shock [Fatal]
  - Septic shock [Fatal]
  - Sepsis [Fatal]
  - Mouth ulceration [Unknown]
  - Dyskinesia [Unknown]
  - Pyrexia [Unknown]
  - Infection [Fatal]
  - Genital erosion [Unknown]
  - Hypersensitivity [Unknown]
  - Hypoproteinaemia [Unknown]
  - Rash [Unknown]
  - Erythema [Unknown]
  - Muscular weakness [Unknown]
  - Swelling [Unknown]
  - Somnolence [Unknown]
  - Hyperaesthesia [Unknown]
  - Immune system disorder [Fatal]
  - Lip erosion [Unknown]
  - Blood albumin decreased [Unknown]
  - Skin exfoliation [Unknown]
  - Purulent discharge [Unknown]
  - Conjunctivitis [Unknown]
  - Hypopnoea [Unknown]
  - Pallor [Unknown]
  - Diarrhoea [Unknown]
  - Blood pressure decreased [Unknown]
  - Body temperature increased [Unknown]
  - Scab [Unknown]
  - Dehydration [Fatal]
  - Skin lesion [Unknown]
